FAERS Safety Report 8993866 (Version 1)
Quarter: 2013Q1

REPORT INFORMATION
  Report Type: Spontaneous
  Country: US (occurrence: US)
  Receive Date: 20130102
  Receipt Date: 20130102
  Transmission Date: 20140127
  Serious: No
  Sender: FDA-Public Use
  Company Number: US-AMGEN-USASP2012083418

PATIENT
  Age: 55 None
  Sex: Female

DRUGS (4)
  1. ENBREL [Suspect]
     Indication: RHEUMATOID ARTHRITIS
     Dosage: 50 MG, QWK
     Dates: start: 20000201
  2. METHOTREXATE [Concomitant]
     Dosage: 2.5 MG, 6 TABS WEEKLY
     Dates: start: 2000
  3. HUMIRA [Concomitant]
     Dosage: UNK
  4. RITUXAN [Concomitant]
     Dosage: UNK

REACTIONS (3)
  - Arthralgia [Recovered/Resolved]
  - Pain in extremity [Not Recovered/Not Resolved]
  - Incorrect dose administered [Recovered/Resolved]
